FAERS Safety Report 7892434-8 (Version None)
Quarter: 2011Q4

REPORT INFORMATION
  Report Type: 
  Country: None (occurrence: None)
  Receive Date: 20111102
  Receipt Date: 20111020
  Transmission Date: 20120403
  Serious: Yes (Other)
  Sender: FDA-Public Use
  Company Number: 2011P1009565

PATIENT
  Age: 78 Year
  Sex: Female
  Weight: 74.8435 kg

DRUGS (6)
  1. WARFARIN SODIUM [Suspect]
     Indication: THROMBOSIS
     Dosage: 5 MG;QD;PO
     Route: 048
  2. EPLERENONE [Concomitant]
  3. COMBIVENT [Concomitant]
  4. FLOVENT [Concomitant]
  5. PROPAFENONE HCL [Suspect]
     Indication: ARRHYTHMIA
     Dosage: 225 MG;BID;PO
     Route: 048
     Dates: start: 20110426
  6. VERAPAMIL [Concomitant]

REACTIONS (1)
  - EYE HAEMORRHAGE [None]
